FAERS Safety Report 21083925 (Version 1)
Quarter: 2022Q3

REPORT INFORMATION
  Report Type: Spontaneous
  Country: CN (occurrence: CN)
  Receive Date: 20220714
  Receipt Date: 20220714
  Transmission Date: 20221026
  Serious: Yes (Other)
  Sender: FDA-Public Use
  Company Number: None

PATIENT
  Age: 52 Year
  Sex: Female
  Weight: 56 kg

DRUGS (5)
  1. CYCLOPHOSPHAMIDE [Suspect]
     Active Substance: CYCLOPHOSPHAMIDE
     Indication: Breast cancer female
     Dosage: 840 MG, QD POWDER INJECTION, 1ST CHEMOTHERAPY- CYCLOPHOSPHAMIDE (840 MG) + NS (45ML)
     Route: 042
     Dates: start: 20220410, end: 20220410
  2. SODIUM CHLORIDE [Suspect]
     Active Substance: SODIUM CHLORIDE
     Indication: Medication dilution
     Dosage: 45 ML, QD 1ST CHEMOTHERAPY- CYCLOPHOSPHAMIDE (840 MG) + NS (45ML)
     Route: 042
     Dates: start: 20220410, end: 20220410
  3. SODIUM CHLORIDE [Suspect]
     Active Substance: SODIUM CHLORIDE
     Dosage: 100 ML, QD 1ST CHEMOTHERAPY- EPIRUBICIN HYDROCHLORIDE (130 MG) + NS (100ML)
     Route: 041
     Dates: start: 20220410, end: 20220410
  4. EPIRUBICIN [Suspect]
     Active Substance: EPIRUBICIN
     Indication: Breast cancer female
     Dosage: 130 MG, QD POWDER INJECTION, 1ST CHEMOTHERAPY- EPIRUBICIN HYDROCHLORIDE (130 MG) + NS (100ML)
     Route: 041
     Dates: start: 20220410, end: 20220410
  5. AI DUO [Concomitant]
     Indication: Prophylaxis
     Dosage: 6 MG (ON 3RD DAY)
     Route: 058
     Dates: start: 202204

REACTIONS (2)
  - White blood cell count decreased [Recovered/Resolved]
  - Agranulocytosis [Recovered/Resolved]

NARRATIVE: CASE EVENT DATE: 20220418
